FAERS Safety Report 8844397 (Version 2)
Quarter: 2013Q4

REPORT INFORMATION
  Report Type: Spontaneous
  Country: JP (occurrence: None)
  Receive Date: 20121012
  Receipt Date: 20131223
  Transmission Date: 20140711
  Serious: Yes (Death)
  Sender: FDA-Public Use
  Company Number: EUS-2012-00826

PATIENT
  Age: 14 Year
  Sex: Female

DRUGS (3)
  1. ASPARAGINASE [Suspect]
     Indication: ACUTE MYELOID LEUKAEMIA
  2. ASPARAGINASE [Suspect]
     Indication: CHLOROMA
  3. CYTARABINE (CYTARABINE) [Concomitant]

REACTIONS (12)
  - Tumour lysis syndrome [None]
  - Bacterial sepsis [None]
  - Renal failure acute [None]
  - Hyperkalaemia [None]
  - Hyperuricaemia [None]
  - Hyperphosphataemia [None]
  - Hypocalcaemia [None]
  - Continuous haemodiafiltration [None]
  - Neutropenia [None]
  - Pulmonary haemorrhage [None]
  - Disseminated intravascular coagulation [None]
  - Pleural effusion [None]
